FAERS Safety Report 4470254-4 (Version None)
Quarter: 2004Q4

REPORT INFORMATION
  Report Type: 
  Country: None (occurrence: None)
  Receive Date: 20041008
  Receipt Date: 20041001
  Transmission Date: 20050328
  Serious: Yes (Death, Other)
  Sender: FDA-Public Use
  Company Number: PL-MERCK-0410POL00001

PATIENT
  Age: 78 Year
  Sex: Male
  Weight: 74 kg

DRUGS (2)
  1. CAPECITABINE [Concomitant]
     Indication: RECTAL CANCER
     Route: 048
     Dates: start: 20040809, end: 20040821
  2. VIOXX [Suspect]
     Indication: LOCALISED OSTEOARTHRITIS
     Route: 048
     Dates: start: 20010101, end: 20040101

REACTIONS (3)
  - BLOOD IRON DECREASED [None]
  - CARDIAC DISORDER [None]
  - MYOCARDIAL INFARCTION [None]
